FAERS Safety Report 5476681-0 (Version None)
Quarter: 2007Q4

REPORT INFORMATION
  Report Type: 
  Country: None (occurrence: None)
  Receive Date: 20071001
  Receipt Date: 20070919
  Transmission Date: 20080405
  Serious: Yes (Other)
  Sender: FDA-Public Use
  Company Number: CHNY2007JP03214

PATIENT
  Age: 28 Year
  Sex: Female

DRUGS (2)
  1. PURSENNID (NCH)(SENNA GLYCOSIDES (CA SALTS OF PURIFIED SENNA EXTRACT)) [Suspect]
     Indication: ENDOSCOPY LARGE BOWEL
     Dosage: ORAL
     Route: 048
     Dates: start: 20070918
  2. CEFACLOR [Suspect]
     Dosage: ORAL
     Route: 048
     Dates: start: 20070918

REACTIONS (1)
  - SHOCK [None]
